FAERS Safety Report 8541760-8 (Version None)
Quarter: 2012Q3

REPORT INFORMATION
  Report Type: 
  Country: None (occurrence: None)
  Receive Date: 20120726
  Receipt Date: 20110823
  Transmission Date: 20120928
  Serious: No
  Sender: FDA-Public Use
  Company Number: US-ASTRAZENECA-2011SE50901

PATIENT
  Age: 42 Year
  Sex: Female
  Weight: 76.2 kg

DRUGS (3)
  1. SYNTHROID [Concomitant]
     Indication: THYROID DISORDER
  2. SEROQUEL [Suspect]
     Indication: DEPRESSION
     Route: 048
     Dates: start: 20080101
  3. SEROQUEL [Suspect]
     Indication: SLEEP DISORDER
     Route: 048
     Dates: start: 20080101

REACTIONS (4)
  - VISION BLURRED [None]
  - DRY MOUTH [None]
  - WEIGHT INCREASED [None]
  - OFF LABEL USE [None]
